FAERS Safety Report 19657101 (Version 1)
Quarter: 2021Q3

REPORT INFORMATION
  Report Type: Spontaneous
  Country: US (occurrence: US)
  Receive Date: 20210804
  Receipt Date: 20210804
  Transmission Date: 20211014
  Serious: Yes (Other)
  Sender: FDA-Public Use
  Company Number: None

PATIENT
  Age: 71 Year
  Sex: Female
  Weight: 61.87 kg

DRUGS (9)
  1. MULTIVITAMIN ADULTS 50+ [Concomitant]
  2. PRILOSEC [Concomitant]
     Active Substance: OMEPRAZOLE MAGNESIUM
  3. VITAMIN B12 [Concomitant]
     Active Substance: CYANOCOBALAMIN
  4. VITAMIN C [Concomitant]
     Active Substance: ASCORBIC ACID
  5. IBRANCE [Suspect]
     Active Substance: PALBOCICLIB
     Indication: INTRADUCTAL PROLIFERATIVE BREAST LESION
     Dosage: ?          OTHER FREQUENCY:QDX21D,7DOFF;?
     Route: 048
     Dates: start: 20210515
  6. VITAMIN D3 [Concomitant]
     Active Substance: CHOLECALCIFEROL
  7. LETROZOLE. [Concomitant]
     Active Substance: LETROZOLE
  8. ELIQUIS [Concomitant]
     Active Substance: APIXABAN
  9. PLAQUENIL [Concomitant]
     Active Substance: HYDROXYCHLOROQUINE SULFATE

REACTIONS (3)
  - Thrombosis [None]
  - Abdominal discomfort [None]
  - Therapy interrupted [None]
